FAERS Safety Report 9933947 (Version 2)
Quarter: 2014Q1

REPORT INFORMATION
  Report Type: Report from Study
  Country: US (occurrence: US)
  Receive Date: 20140228
  Receipt Date: 20140228
  Transmission Date: 20141002
  Serious: No
  Sender: FDA-Public Use
  Company Number: US-ABBVIE-14P-163-1190928-00

PATIENT
  Sex: Male
  Weight: 79.9 kg

DRUGS (3)
  1. ANDROGEL [Suspect]
     Indication: BLOOD TESTOSTERONE DECREASED
     Dates: start: 201307, end: 201308
  2. ANDROGEL [Suspect]
     Dates: start: 201308
  3. LEVITRA [Concomitant]
     Indication: PRIAPISM

REACTIONS (4)
  - Constipation [Recovering/Resolving]
  - Blood pressure increased [Not Recovered/Not Resolved]
  - Insomnia [Recovering/Resolving]
  - Prostatic specific antigen increased [Not Recovered/Not Resolved]
